FAERS Safety Report 11461516 (Version 1)
Quarter: 2015Q3

REPORT INFORMATION
  Report Type: Spontaneous
  Country: US (occurrence: US)
  Receive Date: 20150831
  Receipt Date: 20150831
  Transmission Date: 20151125
  Serious: No
  Sender: FDA-Public Use
  Company Number: US-ELI_LILLY_AND_COMPANY-US201008000560

PATIENT
  Age: 15 Year
  Sex: Male

DRUGS (3)
  1. H2 BLOCKER [Concomitant]
  2. METHYLPHENIDATE. [Concomitant]
     Active Substance: METHYLPHENIDATE
  3. CYMBALTA [Suspect]
     Active Substance: DULOXETINE HYDROCHLORIDE
     Indication: DEPRESSION
     Dosage: 50 MG, DAILY (1/D)

REACTIONS (2)
  - Apathy [Not Recovered/Not Resolved]
  - Off label use [Not Recovered/Not Resolved]
